FAERS Safety Report 20832811 (Version 1)
Quarter: 2022Q2

REPORT INFORMATION
  Report Type: Spontaneous
  Country: IT (occurrence: IT)
  Receive Date: 20220516
  Receipt Date: 20220516
  Transmission Date: 20220720
  Serious: Yes (Life-Threatening, Other)
  Sender: FDA-Public Use
  Company Number: IT-Covis Pharma GmbH-2020COV00375

PATIENT
  Age: 71 Year
  Sex: Female

DRUGS (2)
  1. RILUZOLE [Suspect]
     Active Substance: RILUZOLE
     Indication: Amyotrophic lateral sclerosis
     Dosage: 50 MG BID PER OS, DURATION 12 HRS
     Route: 048
  2. RILUZOLE [Suspect]
     Active Substance: RILUZOLE
     Indication: Amyotrophic lateral sclerosis

REACTIONS (7)
  - Haemorrhagic necrotic pancreatitis [Recovered/Resolved]
  - Intra-abdominal fluid collection [Recovered/Resolved]
  - Ileus [Recovered/Resolved]
  - Pleural effusion [Recovered/Resolved]
  - Abdominal pain upper [Recovered/Resolved]
  - Nausea [Recovered/Resolved]
  - Pyrexia [Recovered/Resolved]
